FAERS Safety Report 5276708-5 (Version None)
Quarter: 2007Q1

REPORT INFORMATION
  Report Type: 
  Country: None (occurrence: None)
  Receive Date: 20070327
  Receipt Date: 20070316
  Transmission Date: 20070707
  Serious: Yes (Life-Threatening)
  Sender: FDA-Public Use
  Company Number: US-AMGEN-US215569

PATIENT
  Age: 50 Year
  Sex: Female

DRUGS (5)
  1. PROCRIT [Suspect]
     Indication: ANAEMIA OF MALIGNANT DISEASE
     Route: 065
     Dates: start: 20070308
  2. ADRIAMYCIN PFS [Concomitant]
     Route: 065
     Dates: start: 20070118, end: 20070301
  3. CYTOXAN [Concomitant]
     Route: 065
     Dates: start: 20070118, end: 20070301
  4. VERAPAMIL [Concomitant]
     Route: 065
  5. IBUPROFEN [Concomitant]
     Route: 065

REACTIONS (1)
  - SUPRAVENTRICULAR TACHYCARDIA [None]
